FAERS Safety Report 12776430 (Version 1)
Quarter: 2016Q3

REPORT INFORMATION
  Report Type: Spontaneous
  Country: CN (occurrence: CN)
  Receive Date: 20160923
  Receipt Date: 20160923
  Transmission Date: 20161109
  Serious: Yes (Other)
  Sender: FDA-Public Use
  Company Number: CN-IMPAX LABORATORIES, INC-2016-IPXL-01067

PATIENT
  Sex: Female

DRUGS (1)
  1. ALBENZA [Suspect]
     Active Substance: ALBENDAZOLE
     Indication: HELMINTHIC INFECTION
     Dosage: 2 TABLET, UNK
     Route: 048
     Dates: start: 20160906

REACTIONS (4)
  - Drug ineffective [Unknown]
  - Helminthic infection [Not Recovered/Not Resolved]
  - Anal pruritus [Not Recovered/Not Resolved]
  - Discomfort [Unknown]

NARRATIVE: CASE EVENT DATE: 201609
